FAERS Safety Report 5117285-9 (Version None)
Quarter: 2006Q3

REPORT INFORMATION
  Report Type: 
  Country: None (occurrence: None)
  Receive Date: 20060929
  Receipt Date: 20060831
  Transmission Date: 20061208
  Serious: Yes (Other)
  Sender: FDA-Public Use
  Company Number: US-BAYER-200613721BCC

PATIENT
  Age: 42 Year
  Sex: Female
  Weight: 79 kg

DRUGS (13)
  1. ASPIRIN [Suspect]
     Indication: CHEST DISCOMFORT
     Dosage: TOTAL DAILY DOSE: 975 MG  UNIT DOSE: 325 MG
     Route: 048
     Dates: start: 20000101
  2. ASPIRIN [Suspect]
  3. ISOSORBIDE MONONITRATE [Concomitant]
  4. POTASSIUM [Concomitant]
  5. PREVACID [Concomitant]
  6. SPIROLACTONE [Concomitant]
  7. ATENOLOL [Concomitant]
  8. LIPITOR [Concomitant]
  9. HYDROCHLOROTHIAZIDE [Concomitant]
  10. FISH OIL [Concomitant]
  11. GARLIC [Concomitant]
  12. CALCIUM GLUCONATE [Concomitant]
  13. ASPIRIN [Concomitant]

REACTIONS (3)
  - CHEST DISCOMFORT [None]
  - DYSPNOEA [None]
  - MYOCARDIAL INFARCTION [None]
